FAERS Safety Report 8002105-5 (Version None)
Quarter: 2011Q4

REPORT INFORMATION
  Report Type: 
  Country: None (occurrence: None)
  Receive Date: 20111222
  Receipt Date: 20111219
  Transmission Date: 20120403
  Serious: Yes (Other)
  Sender: FDA-Public Use
  Company Number: SE-PFIZER INC-2011307456

PATIENT
  Age: 34 Year
  Sex: Female

DRUGS (1)
  1. SULFASALAZINE [Suspect]
     Indication: COLITIS ULCERATIVE
     Dosage: UNK
     Dates: start: 19940101

REACTIONS (4)
  - VITREOUS FLOATERS [None]
  - DRY EYE [None]
  - EYE DISORDER [None]
  - FOREIGN BODY SENSATION IN EYES [None]
